FAERS Safety Report 5730588-X (Version None)
Quarter: 2008Q2

REPORT INFORMATION
  Report Type: 
  Country: None (occurrence: None)
  Receive Date: 20080502
  Receipt Date: 20080418
  Transmission Date: 20081010
  Serious: Yes (Other)
  Sender: FDA-Public Use
  Company Number: 2008S1006901

PATIENT
  Age: 64 Year
  Sex: Male

DRUGS (2)
  1. AZATHIOPRINE [Suspect]
     Indication: IMMUNOSUPPRESSION
     Dosage: 137.5 MG; DAILY
     Dates: start: 19880101
  2. PREDNISOLONE [Concomitant]

REACTIONS (10)
  - ASPIRATION [None]
  - ASTHENIA [None]
  - CSF PROTEIN INCREASED [None]
  - DYSPHAGIA [None]
  - DYSPHONIA [None]
  - FACIAL PARESIS [None]
  - HEAD AND NECK CANCER [None]
  - RENAL IMPAIRMENT [None]
  - SQUAMOUS CELL CARCINOMA [None]
  - VOCAL CORD PARESIS [None]
